FAERS Safety Report 4554827-6 (Version None)
Quarter: 2005Q1

REPORT INFORMATION
  Report Type: 
  Country: None (occurrence: None)
  Receive Date: 20050114
  Receipt Date: 20030831
  Transmission Date: 20050727
  Serious: Yes (Life-Threatening, Hospitalization)
  Sender: FDA-Public Use
  Company Number: GXKR2003DE00566

PATIENT
  Age: 25 Year
  Sex: Female

DRUGS (5)
  1. AMOXICILLIN-CLAVULANIC ACID (NGX) (AMOXICILLIN, CLAVULANATE) [Suspect]
     Indication: PROPHYLAXIS
     Dosage: 4.4 G, INTRAVENOUS
     Route: 042
  2. CARBAMAZEPINE [Concomitant]
  3. PROPOFOL [Concomitant]
  4. ATRACURIUM BESYLATE [Concomitant]
  5. REMIFENTANIL (REMIFENTANIL) [Concomitant]

REACTIONS (8)
  - ANAESTHETIC COMPLICATION [None]
  - BLOOD URINE PRESENT [None]
  - CEREBRAL DISORDER [None]
  - DEHYDRATION [None]
  - DRUG INEFFECTIVE [None]
  - PROCEDURAL COMPLICATION [None]
  - RENAL FAILURE ACUTE [None]
  - URINE OUTPUT DECREASED [None]
